FAERS Safety Report 21606432 (Version 2)
Quarter: 2022Q4

REPORT INFORMATION
  Report Type: Spontaneous
  Country: US (occurrence: US)
  Receive Date: 20221117
  Receipt Date: 20221216
  Transmission Date: 20230112
  Serious: No
  Sender: FDA-Public Use
  Company Number: US-JNJFOC-20221044365

PATIENT
  Sex: Female

DRUGS (1)
  1. TREMFYA [Suspect]
     Active Substance: GUSELKUMAB
     Indication: Psoriasis
     Route: 058
     Dates: start: 202001

REACTIONS (5)
  - Device malfunction [Unknown]
  - Product quality issue [Unknown]
  - Product leakage [Unknown]
  - Needle issue [Unknown]
  - Product dose omission issue [Unknown]
